FAERS Safety Report 12427829 (Version 1)
Quarter: 2016Q2

REPORT INFORMATION
  Report Type: Spontaneous
  Country: AU (occurrence: AU)
  Receive Date: 20160602
  Receipt Date: 20160602
  Transmission Date: 20160815
  Serious: Yes (Other)
  Sender: FDA-Public Use
  Company Number: AU-ROCHE-1763768

PATIENT

DRUGS (1)
  1. RITUXIMAB [Suspect]
     Active Substance: RITUXIMAB
     Indication: MULTIPLE SCLEROSIS
     Route: 037

REACTIONS (4)
  - Off label use [Unknown]
  - B-lymphocyte count decreased [Unknown]
  - Cerebrospinal fluid leakage [Unknown]
  - Incorrect route of drug administration [Unknown]
